FAERS Safety Report 13955392 (Version 1)
Quarter: 2017Q3

REPORT INFORMATION
  Report Type: Spontaneous
  Country: US (occurrence: US)
  Receive Date: 20170911
  Receipt Date: 20170911
  Transmission Date: 20171128
  Serious: No
  Sender: FDA-Public Use
  Company Number: US-LEXICON PHARMACEUTICALS, INC-17-1606-00812

PATIENT
  Sex: Female

DRUGS (19)
  1. DIGOXIN. [Concomitant]
     Active Substance: DIGOXIN
  2. IRON [Concomitant]
     Active Substance: IRON
  3. CYANOCOBALAMIN [Concomitant]
  4. TELOTRISTAT ETHYL [Suspect]
     Active Substance: TELOTRISTAT ETHYL
     Indication: CARCINOID SYNDROME
     Route: 048
     Dates: start: 20170426
  5. CAL-CITRATE PLUS VITAMIN D [Concomitant]
  6. POTASSIUM CITRATE. [Concomitant]
     Active Substance: POTASSIUM CITRATE
  7. ELIQUIS [Concomitant]
  8. MONTELUKAST SODIUM [Concomitant]
  9. MAGNESIUM [Concomitant]
     Active Substance: MAGNESIUM
  10. LASIX [Concomitant]
  11. DULERA [Concomitant]
  12. NORCO [Concomitant]
  13. OMEPRAZOLE [Concomitant]
  14. HEMOCYTE [Concomitant]
  15. LOMOTIL [Concomitant]
     Active Substance: ATROPINE SULFATE\DIPHENOXYLATE HYDROCHLORIDE
  16. TELOTRISTAT ETHYL [Suspect]
     Active Substance: TELOTRISTAT ETHYL
     Indication: NEOPLASM
  17. FLUTICASONE PROP [Concomitant]
     Active Substance: FLUTICASONE PROPIONATE
  18. SPIRONOLACTONE [Concomitant]
  19. CHOLECALCIFEROL [Concomitant]
     Active Substance: CHOLECALCIFEROL

REACTIONS (2)
  - Therapeutic procedure [Unknown]
  - Drug dose omission [Unknown]

NARRATIVE: CASE EVENT DATE: 2017
